FAERS Safety Report 5834318-2 (Version None)
Quarter: 2008Q3

REPORT INFORMATION
  Report Type: 
  Country: None (occurrence: None)
  Receive Date: 20080731
  Receipt Date: 20080718
  Transmission Date: 20090109
  Serious: Yes (Hospitalization)
  Sender: FDA-Public Use
  Company Number: 237831K07USA

PATIENT
  Age: 53 Year
  Sex: Male

DRUGS (1)
  1. REBIF [Suspect]
     Indication: MULTIPLE SCLEROSIS
     Dosage: 44 MCG, 3 IN 1 WEEKS,  SUBCUTANEOUS
     Route: 058
     Dates: start: 20040419

REACTIONS (6)
  - ACUTE MYOCARDIAL INFARCTION [None]
  - DRY EYE [None]
  - MENTAL STATUS CHANGES [None]
  - SEPTIC SHOCK [None]
  - STAPHYLOCOCCAL ABSCESS [None]
  - UNEVALUABLE EVENT [None]
